FAERS Safety Report 9563529 (Version 1)
Quarter: 2013Q1

REPORT INFORMATION
  Report Type: Spontaneous
  Country: US (occurrence: None)
  Receive Date: 20121218
  Receipt Date: 20121218
  Transmission Date: 20140127
  Serious: Yes (Hospitalization)
  Sender: FDA-Public Use
  Company Number: PHEH2012US015507

PATIENT
  Age: 65 Year
  Sex: Male
  Weight: 87.5 kg

DRUGS (4)
  1. EXJADE [Suspect]
     Indication: HAEMOSIDEROSIS
     Route: 048
     Dates: start: 20110103
  2. FOLIC ACID (FOLIC ACID) [Concomitant]
  3. PREDNISONE (PREDNISONE) [Concomitant]
  4. COUMADIN (WARFARIN SODIUM) [Concomitant]

REACTIONS (3)
  - Anaemia [None]
  - Dyspnoea [None]
  - Chest pain [None]
